FAERS Safety Report 6163120-X (Version None)
Quarter: 2009Q2

REPORT INFORMATION
  Report Type: 
  Country: None (occurrence: None)
  Receive Date: 20090420
  Receipt Date: 20090420
  Transmission Date: 20091009
  Serious: No
  Sender: FDA-Public Use
  Company Number: None

PATIENT
  Age: 49 Year
  Sex: Male
  Weight: 74.4 kg

DRUGS (11)
  1. VARENICLINE [Suspect]
     Indication: SMOKING CESSATION THERAPY
     Dosage: 1 MG BID PO
     Route: 048
     Dates: start: 20071002, end: 20071101
  2. BUPROPION HCL [Concomitant]
  3. DOCUSATE SODIUM [Concomitant]
  4. INSULIN NPH (HUMAN) INJ (NOVO) [Concomitant]
  5. LISINOPRIL [Concomitant]
  6. PANCRELIPASE [Concomitant]
  7. POLYETHYLENE GLYCOL [Concomitant]
  8. PROMETHAZINE [Concomitant]
  9. PROMETHAZINE RECTAL SUPP [Concomitant]
  10. RANITIDINE [Concomitant]
  11. SIMVASTATIN [Concomitant]

REACTIONS (1)
  - PANCREATITIS [None]
